FAERS Safety Report 10577609 (Version 1)
Quarter: 2014Q4

REPORT INFORMATION
  Report Type: Report from Study
  Country: RO (occurrence: RO)
  Receive Date: 20141111
  Receipt Date: 20141111
  Transmission Date: 20150529
  Serious: Yes (Death)
  Sender: FDA-Public Use
  Company Number: RO-BAXTER-2014BAX067701

PATIENT

DRUGS (1)
  1. SEVOFLURANE BAXTER [Suspect]
     Active Substance: SEVOFLURANE
     Indication: ANAESTHESIA
     Route: 065

REACTIONS (1)
  - Cardiac death [Fatal]
